FAERS Safety Report 7084886-0 (Version None)
Quarter: 2010Q4

REPORT INFORMATION
  Report Type: 
  Country: None (occurrence: None)
  Receive Date: 20101027
  Receipt Date: 20101020
  Transmission Date: 20110411
  Serious: Yes (Death, Hospitalization, Other)
  Sender: FDA-Public Use
  Company Number: 2010JP006078

PATIENT
  Age: 51 Year
  Sex: Male

DRUGS (5)
  1. TACROLIMUS [Suspect]
     Indication: RENAL TRANSPLANT
  2. PREDNISOLONE [Suspect]
     Indication: RENAL TRANSPLANT
  3. MYCOPHENOLATE MOFETIL [Suspect]
     Indication: RENAL TRANSPLANT
  4. GANCICLOVIR [Concomitant]
  5. FLUCONAZOLE [Concomitant]

REACTIONS (10)
  - CANDIDIASIS [None]
  - CYTOMEGALOVIRUS GASTROINTESTINAL INFECTION [None]
  - GASTRIC ULCER [None]
  - HAEMODIALYSIS [None]
  - SCLEROSING ENCAPSULATING PERITONITIS [None]
  - SEPTIC SHOCK [None]
  - SERRATIA INFECTION [None]
  - STAPHYLOCOCCAL BACTERAEMIA [None]
  - STAPHYLOCOCCAL INFECTION [None]
  - STENOTROPHOMONAS INFECTION [None]
